FAERS Safety Report 8503158-8 (Version None)
Quarter: 2012Q3

REPORT INFORMATION
  Report Type: 
  Country: None (occurrence: None)
  Receive Date: 20120711
  Receipt Date: 20120706
  Transmission Date: 20120928
  Serious: No
  Sender: FDA-Public Use
  Company Number: US-PFIZER INC-2012162933

PATIENT

DRUGS (4)
  1. PRAVASTATIN [Suspect]
     Dosage: UNK
  2. SIMVASTATIN [Suspect]
     Dosage: UNK
  3. CRESTOR [Suspect]
     Dosage: UNK
  4. LIPITOR [Suspect]
     Dosage: UNK

REACTIONS (2)
  - DRUG HYPERSENSITIVITY [None]
  - RASH [None]
